FAERS Safety Report 19616796 (Version 1)
Quarter: 2021Q3

REPORT INFORMATION
  Report Type: Spontaneous
  Country: US (occurrence: US)
  Receive Date: 20210727
  Receipt Date: 20210727
  Transmission Date: 20211014
  Serious: No
  Sender: FDA-Public Use
  Company Number: US-ABBVIE-21K-163-3871320-00

PATIENT
  Sex: Female

DRUGS (2)
  1. SYNTHROID [Suspect]
     Active Substance: LEVOTHYROXINE SODIUM
     Indication: PRODUCT USED FOR UNKNOWN INDICATION
     Route: 048
  2. ARMOUR THYROID [Suspect]
     Active Substance: THYROID, PORCINE
     Indication: PRODUCT USED FOR UNKNOWN INDICATION
     Route: 065

REACTIONS (8)
  - Somnolence [Recovered/Resolved]
  - Alopecia [Recovered/Resolved]
  - Incorrect dose administered [Unknown]
  - Drug intolerance [Unknown]
  - Mental disorder [Recovered/Resolved]
  - Skin disorder [Recovering/Resolving]
  - Feeling cold [Recovered/Resolved]
  - Asthenia [Recovering/Resolving]
